FAERS Safety Report 8769076 (Version 2)
Quarter: 2012Q4

REPORT INFORMATION
  Report Type: 
  Country: US (occurrence: US)
  Receive Date: 20120905
  Receipt Date: 20120924
  Transmission Date: 20130627
  Serious: Yes (Other)
  Sender: FDA-Public Use
  Company Number: US-BRISTOL-MYERS SQUIBB COMPANY-16902868

PATIENT
  Sex: Female

DRUGS (7)
  1. ABILIFY [Suspect]
  2. SINEMET [Concomitant]
  3. POTASSIUM [Concomitant]
  4. CYMBALTA [Concomitant]
  5. XANAX [Concomitant]
  6. PROBIOTICA [Concomitant]
  7. WARFARIN [Concomitant]

REACTIONS (3)
  - Parkinsonism [Unknown]
  - Fall [Not Recovered/Not Resolved]
  - Meniscus injury [Unknown]
